FAERS Safety Report 10693278 (Version 2)
Quarter: 2016Q1

REPORT INFORMATION
  Report Type: Spontaneous
  Country: JP (occurrence: JP)
  Receive Date: 20150106
  Receipt Date: 20160321
  Transmission Date: 20160525
  Serious: Yes (Death, Hospitalization)
  Sender: FDA-Public Use
  Company Number: JP-JNJFOC-20141219115

PATIENT
  Age: 95 Year
  Sex: Female
  Weight: 38 kg

DRUGS (4)
  1. XARELTO [Suspect]
     Active Substance: RIVAROXABAN
     Indication: CEREBROVASCULAR ACCIDENT PROPHYLAXIS
     Route: 048
     Dates: start: 20141031, end: 20141103
  2. ALTEPLASE [Concomitant]
     Active Substance: ALTEPLASE
     Indication: EMBOLIC STROKE
     Route: 042
     Dates: start: 20141024
  3. XARELTO [Suspect]
     Active Substance: RIVAROXABAN
     Indication: ATRIAL FIBRILLATION
     Route: 048
     Dates: start: 20141031, end: 20141103
  4. LANSOPRAZOLE. [Concomitant]
     Active Substance: LANSOPRAZOLE
     Indication: GASTRITIS PROPHYLAXIS
     Route: 048
     Dates: end: 20141117

REACTIONS (2)
  - Pancreatic carcinoma [Fatal]
  - Embolic stroke [Unknown]

NARRATIVE: CASE EVENT DATE: 20141103
